FAERS Safety Report 12329128 (Version 1)
Quarter: 2016Q2

REPORT INFORMATION
  Report Type: Report from Study
  Country: US (occurrence: US)
  Receive Date: 20160503
  Receipt Date: 20160503
  Transmission Date: 20160815
  Serious: Yes (Hospitalization)
  Sender: FDA-Public Use
  Company Number: US-SA-2016SA086468

PATIENT
  Age: 67 Year
  Sex: Male
  Weight: 95.9 kg

DRUGS (25)
  1. PRINIVIL [Concomitant]
     Active Substance: LISINOPRIL
     Route: 048
  2. COMPAZINE [Concomitant]
     Active Substance: PROCHLORPERAZINE MALEATE
     Dosage: 10 MG
  3. GLUCOPHAGE XR [Concomitant]
     Active Substance: METFORMIN HYDROCHLORIDE
     Dosage: 500 MG
     Route: 048
  4. ZEASORB [Concomitant]
     Active Substance: MICONAZOLE NITRATE
  5. XTANDI [Suspect]
     Active Substance: ENZALUTAMIDE
     Indication: PROSTATE CANCER
     Route: 048
     Dates: start: 20151125
  6. ATIVAN [Concomitant]
     Active Substance: LORAZEPAM
     Indication: ANXIETY
     Dosage: 1-2 MG TOTAL
     Route: 048
  7. NEULASTA [Concomitant]
     Active Substance: PEGFILGRASTIM
  8. ZESTRIL [Concomitant]
     Active Substance: LISINOPRIL
     Route: 048
  9. ZOFRAN [Concomitant]
     Active Substance: ONDANSETRON HYDROCHLORIDE
     Indication: NAUSEA
     Route: 048
  10. DELTASONE [Concomitant]
     Active Substance: PREDNISONE
     Dosage: 5 MG
  11. TOPAMAX [Concomitant]
     Active Substance: TOPIRAMATE
     Dosage: AT BEDTIME
     Route: 048
  12. LIPITOR [Concomitant]
     Active Substance: ATORVASTATIN CALCIUM
     Route: 048
  13. CALCIUM PLUS VITAMIN D3 [Concomitant]
     Dosage: 600-500 MG UNIT CAB
  14. VIAGRA [Concomitant]
     Active Substance: SILDENAFIL CITRATE
     Dosage: 25 MG
  15. JEVTANA [Suspect]
     Active Substance: CABAZITAXEL
     Indication: PROSTATE CANCER
     Route: 042
     Dates: start: 20160412, end: 20160412
  16. BIOTIN [Concomitant]
     Active Substance: BIOTIN
     Dosage: 2.5 MG
  17. BENADRYL [Concomitant]
     Active Substance: DIPHENHYDRAMINE HYDROCHLORIDE
     Dosage: 50 MG
  18. POTASSIUM [Concomitant]
     Active Substance: POTASSIUM
     Dosage: 75 MG
  19. VITAMIN B12 [Concomitant]
     Active Substance: CYANOCOBALAMIN
     Dosage: 1000 MCG TAB
  20. FISH OIL [Concomitant]
     Active Substance: FISH OIL
     Dosage: 1200 MG
  21. JEVTANA [Suspect]
     Active Substance: CABAZITAXEL
     Indication: PROSTATE CANCER
     Route: 042
     Dates: start: 20151124, end: 20151124
  22. TYLENOL [Concomitant]
     Active Substance: ACETAMINOPHEN
     Dosage: STRENTH: 325
  23. LUPRON [Concomitant]
     Active Substance: LEUPROLIDE ACETATE
     Dosage: 22.5 MG
  24. ROXICODONE [Concomitant]
     Active Substance: OXYCODONE HYDROCHLORIDE
     Dosage: 5 MG IMMEDIATE RELEASE TABLET
  25. AMBIEN [Concomitant]
     Active Substance: ZOLPIDEM TARTRATE
     Dosage: 5 MG TAB

REACTIONS (1)
  - Influenza like illness [Recovered/Resolved]

NARRATIVE: CASE EVENT DATE: 20160413
